FAERS Safety Report 6327616-X (Version None)
Quarter: 2009Q3

REPORT INFORMATION
  Report Type: 
  Country: None (occurrence: None)
  Receive Date: 20090821
  Receipt Date: 20090810
  Transmission Date: 20100115
  Serious: Yes (Other)
  Sender: FDA-Public Use
  Company Number: ADR15112009

PATIENT
  Age: 37 Year
  Sex: Female

DRUGS (2)
  1. TOPIRAMATE [Suspect]
     Indication: MIGRAINE
     Dosage: 25 MG (4/1DAY);
  2. TOPIRAMATE [Suspect]
     Indication: PROPHYLAXIS
     Dosage: 25 MG (4/1DAY);

REACTIONS (3)
  - CHOROIDAL EFFUSION [None]
  - RETINAL DEGENERATION [None]
  - RETINAL DETACHMENT [None]
